FAERS Safety Report 10401899 (Version 1)
Quarter: 2014Q1

REPORT INFORMATION
  Report Type: Spontaneous
  Country: US (occurrence: None)
  Receive Date: 20130815
  Receipt Date: 20130815
  Transmission Date: 20141002
  Serious: Yes (Hospitalization, Other)
  Sender: FDA-Public Use
  Company Number: ADR-2012-01925

PATIENT
  Sex: Male

DRUGS (1)
  1. LIORESAL INTRATHECAL (BACLOFEN INJECTION) 2000 MCG/ML [Suspect]
     Indication: MUSCLE SPASTICITY

REACTIONS (15)
  - Blood pressure fluctuation [None]
  - Pyrexia [None]
  - Hypertonia [None]
  - Muscle rigidity [None]
  - Convulsion [None]
  - Tremor [None]
  - Underdose [None]
  - Unevaluable event [None]
  - Musculoskeletal stiffness [None]
  - Hyperhidrosis [None]
  - Blood pressure increased [None]
  - Muscle spasticity [None]
  - Pneumonia [None]
  - Clonus [None]
  - Vomiting [None]
